FAERS Safety Report 4984456-1 (Version None)
Quarter: 2006Q2

REPORT INFORMATION
  Report Type: 
  Country: None (occurrence: None)
  Receive Date: 20060421
  Receipt Date: 20060415
  Transmission Date: 20061013
  Serious: Yes (Other)
  Sender: FDA-Public Use
  Company Number: 2006030211

PATIENT
  Age: 74 Year
  Sex: Female
  Weight: 58.514 kg

DRUGS (10)
  1. ZYRTEC [Suspect]
     Indication: HYPERSENSITIVITY
     Dosage: 10 MG (10 MG, 1 IN 1 D) ORAL
     Route: 048
  2. COREG [Concomitant]
  3. VYTORIN [Concomitant]
  4. PROPOXYPHENE HCL [Concomitant]
  5. PLAVIX [Concomitant]
  6. PREVACID [Concomitant]
  7. FOLIC ACID [Concomitant]
  8. ACTONEL [Concomitant]
  9. FISH OIL [Concomitant]
  10. VITAMINS [Concomitant]

REACTIONS (1)
  - THROMBOSIS [None]
